FAERS Safety Report 16472714 (Version 1)
Quarter: 2019Q2

REPORT INFORMATION
  Report Type: Spontaneous
  Country: CZ (occurrence: CZ)
  Receive Date: 20190625
  Receipt Date: 20190625
  Transmission Date: 20190711
  Serious: Yes (Life-Threatening, Other)
  Sender: FDA-Public Use
  Company Number: CZ-TEVA-2019-CZ-1068179

PATIENT
  Age: 72 Year
  Sex: Female
  Weight: 68 kg

DRUGS (3)
  1. OXALIPLATIN. [Suspect]
     Active Substance: OXALIPLATIN
     Indication: RECTAL NEOPLASM
     Dosage: EVERY 2 WEEKS
     Route: 042
     Dates: start: 20190520, end: 20190603
  2. LEUKOVORIN [Concomitant]
     Active Substance: LEUCOVORIN SODIUM
     Indication: RECTAL NEOPLASM
     Dosage: EVERY 2 WEEKS
     Route: 042
     Dates: start: 20190520, end: 20190603
  3. FLUOROURACIL. [Concomitant]
     Active Substance: FLUOROURACIL
     Indication: RECTAL NEOPLASM
     Dosage: EVERY 2 WEEKS
     Route: 042
     Dates: start: 20190520, end: 20190603

REACTIONS (8)
  - Lip swelling [Recovered/Resolved]
  - Oedema peripheral [Recovered/Resolved]
  - Hypersensitivity [Recovered/Resolved]
  - Paraesthesia [Recovering/Resolving]
  - Neurotoxicity [Recovering/Resolving]
  - Paraesthesia oral [Recovering/Resolving]
  - Rash [Recovered/Resolved]
  - Tongue oedema [Recovered/Resolved]

NARRATIVE: CASE EVENT DATE: 20190603
